FAERS Safety Report 5307176-2 (Version None)
Quarter: 2007Q2

REPORT INFORMATION
  Report Type: 
  Country: None (occurrence: None)
  Receive Date: 20070425
  Receipt Date: 20070226
  Transmission Date: 20071010
  Serious: No
  Sender: FDA-Public Use
  Company Number: US-AMGEN-US212784

PATIENT
  Sex: Female

DRUGS (1)
  1. VECTIBIX [Suspect]
     Indication: COLORECTAL CANCER
     Route: 065
     Dates: start: 20070206

REACTIONS (5)
  - DERMATITIS ACNEIFORM [None]
  - NAIL BED BLEEDING [None]
  - SKIN EXFOLIATION [None]
  - SKIN FISSURES [None]
  - SKIN TOXICITY [None]
